FAERS Safety Report 6022125-X (Version None)
Quarter: 2008Q4

REPORT INFORMATION
  Report Type: 
  Country: None (occurrence: None)
  Receive Date: 20081229
  Receipt Date: 20081223
  Transmission Date: 20090506
  Serious: Yes (Death)
  Sender: FDA-Public Use
  Company Number: US-ASTRAZENECA-2008AC03307

PATIENT
  Age: 22 Year
  Sex: Male

DRUGS (4)
  1. QUETIAPINE [Suspect]
     Route: 065
  2. HEROIN [Suspect]
     Route: 065
  3. METHADON HCL TAB [Suspect]
     Route: 065
  4. ALPRAZOLAM [Suspect]
     Route: 065

REACTIONS (2)
  - CARDIO-RESPIRATORY ARREST [None]
  - COMPLETED SUICIDE [None]
